FAERS Safety Report 15740526 (Version 3)
Quarter: 2018Q4

REPORT INFORMATION
  Report Type: Report from Study
  Country: JP (occurrence: JP)
  Receive Date: 20181219
  Receipt Date: 20181228
  Transmission Date: 20190205
  Serious: Yes (Hospitalization)
  Sender: FDA-Public Use
  Company Number: JP-EISAI MEDICAL RESEARCH-EC-2018-049453

PATIENT
  Age: 78 Year
  Sex: Male
  Weight: 64 kg

DRUGS (14)
  1. LENVATINIB [Suspect]
     Active Substance: LENVATINIB
     Indication: HEPATOCELLULAR CARCINOMA
     Route: 048
     Dates: start: 20170817
  2. PEMBROLIZUMAB. [Suspect]
     Active Substance: PEMBROLIZUMAB
     Indication: HEPATOCELLULAR CARCINOMA
     Route: 041
     Dates: start: 20170817
  3. REBAMIPIDE [Concomitant]
     Active Substance: REBAMIPIDE
  4. LOXONIN [Concomitant]
     Active Substance: LOXOPROFEN SODIUM
  5. MYSLEE [Concomitant]
     Active Substance: ZOLPIDEM TARTRATE
  6. THYRADIN [Concomitant]
     Active Substance: LEVOTHYROXINE
  7. LOXOPROFEN [Concomitant]
     Active Substance: LOXOPROFEN
  8. HYALEIN [Concomitant]
     Active Substance: HYALURONATE SODIUM
  9. BLOPRESS [Concomitant]
     Active Substance: CANDESARTAN CILEXETIL
  10. KERATINAMIN KOWA [Concomitant]
  11. TAKECAB [Concomitant]
     Active Substance: VONOPRAZAN FUMURATE
  12. MAGNESIUM OXIDE. [Concomitant]
     Active Substance: MAGNESIUM OXIDE
  13. AZUNOL GARGLE [Concomitant]
  14. AMLODIPINE [Concomitant]
     Active Substance: AMLODIPINE BESYLATE

REACTIONS (1)
  - Adrenal insufficiency [Recovering/Resolving]

NARRATIVE: CASE EVENT DATE: 20181214
